FAERS Safety Report 9753712 (Version 1)
Quarter: 2013Q4

REPORT INFORMATION
  Report Type: Spontaneous
  Country: US (occurrence: US)
  Receive Date: 20131213
  Receipt Date: 20131213
  Transmission Date: 20140711
  Serious: No
  Sender: FDA-Public Use
  Company Number: US-GILEAD-2009-0026190

PATIENT
  Sex: Female
  Weight: 55.79 kg

DRUGS (20)
  1. LETAIRIS [Suspect]
     Indication: PULMONARY ARTERIAL HYPERTENSION
     Route: 048
     Dates: start: 20080225
  2. VENTAVIS [Concomitant]
  3. PREDNISONE [Concomitant]
  4. AMLODIPINE BESYLATE [Concomitant]
  5. OS-CAL [Concomitant]
  6. ECOTRIN [Concomitant]
  7. CENTRUM SILVER [Concomitant]
  8. PREMARIN [Concomitant]
  9. REVATIO [Concomitant]
  10. CLINDAMYCIN HCL [Concomitant]
  11. BENADRYL [Concomitant]
  12. BENICAR HCT [Concomitant]
  13. OXYGEN [Concomitant]
  14. LEVAQUIN [Concomitant]
  15. ATENOLOL [Concomitant]
  16. BENAZEPRIL HCL [Concomitant]
  17. DIGOXIN [Concomitant]
  18. CRESTOR [Concomitant]
  19. ALLOPURINOL [Concomitant]
  20. HYDROCODONE [Concomitant]

REACTIONS (1)
  - Dysphonia [Unknown]
